FAERS Safety Report 21375755 (Version 1)
Quarter: 2022Q3

REPORT INFORMATION
  Report Type: Spontaneous
  Country: DE (occurrence: DE)
  Receive Date: 20220926
  Receipt Date: 20220926
  Transmission Date: 20221026
  Serious: Yes (Other)
  Sender: FDA-Public Use
  Company Number: None

PATIENT
  Age: 80 Year
  Sex: Female
  Weight: 72.5 kg

DRUGS (25)
  1. LAGEVRIO [Suspect]
     Active Substance: MOLNUPIRAVIR
     Indication: COVID-19
     Dosage: DAILY DOSE: 2X4 HARD CAPSULE (=8 HARD CAPSULE)
     Route: 048
     Dates: start: 20220719, end: 20220723
  2. LAGEVRIO [Suspect]
     Active Substance: MOLNUPIRAVIR
     Dosage: DAILY DOSE: 2X4 HARD CAPSULES (=8 HARD CAPSULES)
     Route: 048
     Dates: start: 20220718, end: 20220718
  3. CANDESARTAN RATIOPHARM [Concomitant]
     Dosage: UNK
     Route: 048
  4. THIOCTACID 600 HR [Concomitant]
     Dosage: 0-0-1
     Route: 048
     Dates: start: 20220718
  5. PANTOPRAZOLE SODIUM [Concomitant]
     Active Substance: PANTOPRAZOLE SODIUM
     Dosage: 1-0-1
     Route: 048
     Dates: start: 20220718
  6. PREGABALIN PUREN [Concomitant]
     Dosage: 1-0-2
     Route: 048
     Dates: start: 20220718
  7. POTASSIUM CHLORIDE [Concomitant]
     Active Substance: POTASSIUM CHLORIDE
     Dosage: 1-0-1
     Route: 048
     Dates: start: 20220718
  8. PIPERACILLIN AND TAZOBACTAM [Concomitant]
     Active Substance: PIPERACILLIN SODIUM\TAZOBACTAM SODIUM
     Dosage: 1-1-0-1
     Route: 042
     Dates: start: 20220711
  9. SILDENAFIL 1 A PHARMA [Concomitant]
     Dosage: 1-0-0
     Route: 048
     Dates: start: 20220718
  10. METAMIZOLE [Concomitant]
     Active Substance: METAMIZOLE
     Dosage: 1-1-1
     Route: 048
     Dates: start: 20220718
  11. TORSEMIDE [Concomitant]
     Active Substance: TORSEMIDE
     Dosage: 1-0-0
     Route: 048
     Dates: start: 20220718
  12. BISOPROLOL PUREN [Concomitant]
     Dosage: 1-0-0
     Route: 048
     Dates: start: 20220718
  13. PREGABALIN [Concomitant]
     Active Substance: PREGABALIN
     Dosage: 1-0-0
     Route: 048
     Dates: start: 20220718
  14. SPIRONOLACTONE [Concomitant]
     Active Substance: SPIRONOLACTONE
     Route: 048
  15. ENOXAPARIN SODIUM [Concomitant]
     Active Substance: ENOXAPARIN SODIUM
     Dosage: 0-0-1
     Route: 058
     Dates: start: 20220718
  16. AMLODIPIN HEXAL [AMLODIPINE BESILATE] [Concomitant]
     Route: 048
  17. OXYGEN [Concomitant]
     Active Substance: OXYGEN
     Dosage: 3-3-3-3
     Dates: start: 20220718
  18. ACTRAPID [Concomitant]
     Active Substance: INSULIN HUMAN
     Route: 058
     Dates: start: 20220718
  19. LINEZOLID HEXAL [Concomitant]
     Dosage: 1-0-1 (20 P.M)
     Route: 048
     Dates: start: 20220715
  20. ALBUTEROL\IPRATROPIUM [Concomitant]
     Active Substance: ALBUTEROL\IPRATROPIUM
     Dosage: 1-1-0-1 6 A.M., 2 P.M. AND NIGHT
     Dates: start: 20220718
  21. ASPIRIN [Concomitant]
     Active Substance: ASPIRIN
     Dosage: DUE TO INTERACTION WITH IBUPROFEN AT 07:00 IN THE MORNING
     Route: 048
     Dates: start: 20220718
  22. MAGNEROT N [Concomitant]
     Route: 048
  23. ESCITALOPRAM 1A PHARMA [Concomitant]
     Dosage: 0-1-0
     Route: 048
     Dates: start: 20220718
  24. ROSUVASTATIN CALCIUM [Concomitant]
     Active Substance: ROSUVASTATIN CALCIUM
     Route: 048
     Dates: start: 20220718
  25. DAPAGLIFLOZIN [Concomitant]
     Active Substance: DAPAGLIFLOZIN
     Dosage: 1-0-0
     Route: 048
     Dates: start: 20220718

REACTIONS (1)
  - Thrombocytopenia [Not Recovered/Not Resolved]

NARRATIVE: CASE EVENT DATE: 20220720
